FAERS Safety Report 5449700-5 (Version None)
Quarter: 2007Q3

REPORT INFORMATION
  Report Type: 
  Country: None (occurrence: None)
  Receive Date: 20070910
  Receipt Date: 20070910
  Transmission Date: 20080115
  Serious: Yes (Other)
  Sender: FDA-Public Use
  Company Number: None

PATIENT
  Age: 37 Year
  Sex: Female
  Weight: 90.7194 kg

DRUGS (1)
  1. METOPROLOL SUCCINATE EXTENDED RELEASE [Suspect]
     Indication: MIGRAINE
     Dosage: 1 TABLET AT BEDTIME  1 TIME DAILY  PO
     Route: 048
     Dates: start: 20070815, end: 20070904

REACTIONS (8)
  - CARDIAC DISORDER [None]
  - DRY MOUTH [None]
  - HEADACHE [None]
  - HYPERHIDROSIS [None]
  - HYPOAESTHESIA [None]
  - INSOMNIA [None]
  - PALPITATIONS [None]
  - PHARMACEUTICAL PRODUCT COMPLAINT [None]
